FAERS Safety Report 8798489 (Version 1)
Quarter: 2012Q4

REPORT INFORMATION
  Report Type: 
  Country: US (occurrence: US)
  Receive Date: 20120920
  Receipt Date: 20120920
  Transmission Date: 20130627
  Serious: Yes (Other)
  Sender: FDA-Public Use
  Company Number: US-MERCK-1209USA006039

PATIENT
  Age: 38 Year
  Sex: Female

DRUGS (5)
  1. SAPHRIS [Suspect]
     Dosage: 5 mg, UNK
     Route: 060
  2. CALCIUM (UNSPECIFIED) (+) VITAMINS (UNSPECIFIED) [Concomitant]
  3. PRISTIQ [Concomitant]
  4. ABILIFY [Concomitant]
  5. LAMICTAL [Concomitant]

REACTIONS (4)
  - Altered state of consciousness [Unknown]
  - Nausea [Unknown]
  - Vertigo [Unknown]
  - Vomiting [Unknown]
